FAERS Safety Report 13537882 (Version 2)
Quarter: 2017Q2

REPORT INFORMATION
  Report Type: Report from Study
  Country: DE (occurrence: DE)
  Receive Date: 20170511
  Receipt Date: 20170518
  Transmission Date: 20170830
  Serious: Yes (Death, Hospitalization, Other)
  Sender: FDA-Public Use
  Company Number: DE-BRISTOL-MYERS SQUIBB COMPANY-BMS-2017-002435

PATIENT
  Age: 46 Year
  Sex: Female
  Weight: 136 kg

DRUGS (5)
  1. TILIDIN [Concomitant]
     Active Substance: NALOXONE HYDROCHLORIDE\TILIDINE HYDROCHLORIDE
     Indication: BACK PAIN
     Dosage: 150 MG, UNK
     Route: 048
     Dates: start: 20170106
  2. CELLCEPT [Concomitant]
     Active Substance: MYCOPHENOLATE MOFETIL\MYCOPHENOLATE MOFETIL HYDROCHLORIDE
     Indication: TRANSAMINASES INCREASED
     Dosage: 2000 MG, UNK
     Route: 048
     Dates: start: 20170117
  3. NIVOLUMAB [Suspect]
     Active Substance: NIVOLUMAB
     Indication: MALIGNANT MELANOMA
     Dosage: 136 MG, UNK
     Route: 042
     Dates: start: 20161219, end: 20161219
  4. IPILIMUMAB [Suspect]
     Active Substance: IPILIMUMAB
     Indication: MALIGNANT MELANOMA
     Dosage: 408 MG, UNK
     Route: 042
     Dates: start: 20161219, end: 20161219
  5. RANTICA [Concomitant]
     Indication: GASTRITIS PROPHYLAXIS
     Dosage: 300 MG, UNK
     Route: 048
     Dates: start: 20170124

REACTIONS (2)
  - Autoimmune hepatitis [Not Recovered/Not Resolved]
  - Malignant neoplasm progression [Fatal]

NARRATIVE: CASE EVENT DATE: 20170109
